FAERS Safety Report 9876929 (Version 2)
Quarter: 2015Q1

REPORT INFORMATION
  Report Type: Spontaneous
  Country: US (occurrence: US)
  Receive Date: 20140206
  Receipt Date: 20150127
  Transmission Date: 20150721
  Serious: No
  Sender: FDA-Public Use
  Company Number: US-PFIZER INC-2014033349

PATIENT
  Age: 58 Year
  Sex: Male

DRUGS (1)
  1. DILANTIN-125 [Suspect]
     Active Substance: PHENYTOIN
     Dosage: UNK

REACTIONS (1)
  - Drug hypersensitivity [Unknown]
